FAERS Safety Report 7282673-1 (Version None)
Quarter: 2011Q1

REPORT INFORMATION
  Report Type: 
  Country: None (occurrence: None)
  Receive Date: 20110209
  Receipt Date: 20110204
  Transmission Date: 20110831
  Serious: No
  Sender: FDA-Public Use
  Company Number: US-JNJFOC-20110202287

PATIENT
  Sex: Female

DRUGS (4)
  1. FENTANYL-100 [Suspect]
     Indication: SPINAL COLUMN STENOSIS
     Dosage: NDC#: 0781-7242-55
     Route: 062
  2. FENTANYL-100 [Suspect]
     Dosage: NDC#: 0781-7241-55
     Route: 062
  3. UNKNOWN MEDICATION [Concomitant]
     Indication: HYPERTENSION
     Route: 048
  4. NORVASC [Concomitant]
     Indication: HYPERTENSION
     Route: 048

REACTIONS (2)
  - PRODUCT ADHESION ISSUE [None]
  - WRONG TECHNIQUE IN DRUG USAGE PROCESS [None]
